FAERS Safety Report 11381163 (Version 1)
Quarter: 2015Q3

REPORT INFORMATION
  Report Type: Spontaneous
  Country: ES (occurrence: ES)
  Receive Date: 20150814
  Receipt Date: 20150814
  Transmission Date: 20151125
  Serious: Yes (Other)
  Sender: FDA-Public Use
  Company Number: ES-ROCHE-1621301

PATIENT
  Age: 74 Year
  Sex: Male

DRUGS (2)
  1. AVASTIN [Suspect]
     Active Substance: BEVACIZUMAB
     Indication: AGE-RELATED MACULAR DEGENERATION
     Dosage: 1 VIAL (OPHTHALMIC USE)
     Route: 050
     Dates: start: 20150514, end: 20150514
  2. EDEMOX [Concomitant]
     Active Substance: ACETAZOLAMIDE
     Indication: GLAUCOMA
     Route: 048
     Dates: start: 20150313

REACTIONS (2)
  - Bradycardia [Recovered/Resolved]
  - Syncope [Recovered/Resolved]

NARRATIVE: CASE EVENT DATE: 20150514
